FAERS Safety Report 5762321-X (Version None)
Quarter: 2008Q2

REPORT INFORMATION
  Report Type: 
  Country: None (occurrence: None)
  Receive Date: 20080609
  Receipt Date: 20080530
  Transmission Date: 20081010
  Serious: Yes (Hospitalization, Other)
  Sender: FDA-Public Use
  Company Number: PHHO2007SK12957

PATIENT
  Sex: Male
  Weight: 85 kg

DRUGS (3)
  1. TASIGNA [Suspect]
     Indication: CHRONIC MYELOID LEUKAEMIA
     Dosage: 800MG
     Route: 048
     Dates: start: 20070315, end: 20070730
  2. HYDROXYUREA [Concomitant]
     Indication: LEUKOCYTOSIS
  3. MILURIT [Concomitant]
     Indication: HYPERURICAEMIA

REACTIONS (6)
  - BLAST CRISIS IN MYELOGENOUS LEUKAEMIA [None]
  - CHRONIC MYELOID LEUKAEMIA [None]
  - DRUG INEFFECTIVE [None]
  - HYPERURICAEMIA [None]
  - LEUKOCYTOSIS [None]
  - THROMBOCYTOPENIA [None]
